FAERS Safety Report 20440014 (Version 1)
Quarter: 2022Q1

REPORT INFORMATION
  Report Type: Spontaneous
  Country: FI (occurrence: FI)
  Receive Date: 20220207
  Receipt Date: 20220207
  Transmission Date: 20220423
  Serious: Yes (Death, Other)
  Sender: FDA-Public Use
  Company Number: FI-UCBSA-2022004806

PATIENT
  Age: 16 Year
  Sex: Female

DRUGS (4)
  1. BRIVIACT [Suspect]
     Active Substance: BRIVARACETAM
     Indication: Juvenile myoclonic epilepsy
     Dosage: 50 MILLIGRAM, 2X/DAY (BID)
     Route: 048
     Dates: start: 202012
  2. BRIVIACT [Suspect]
     Active Substance: BRIVARACETAM
     Indication: Off label use
     Dosage: 50MG AM AND 75MG PM
     Route: 048
     Dates: start: 202105
  3. QUETIAPINE FUMARATE [Suspect]
     Active Substance: QUETIAPINE FUMARATE
     Indication: Sleep disorder
     Dosage: UNK
     Route: 048
     Dates: start: 2021
  4. FLUOXETINE HYDROCHLORIDE [Concomitant]
     Active Substance: FLUOXETINE HYDROCHLORIDE
     Indication: Depression

REACTIONS (7)
  - Completed suicide [Fatal]
  - Suicidal ideation [Unknown]
  - Seizure [Unknown]
  - Affective disorder [Unknown]
  - Anxiety [Unknown]
  - Sleep disorder [Unknown]
  - Off label use [Unknown]

NARRATIVE: CASE EVENT DATE: 20201201
